FAERS Safety Report 10146682 (Version 2)
Quarter: 2014Q3

REPORT INFORMATION
  Report Type: Spontaneous
  Country: GB (occurrence: None)
  Receive Date: 20140429
  Receipt Date: 20140714
  Transmission Date: 20150326
  Serious: Yes (Other)
  Sender: FDA-Public Use
  Company Number: GB2014K1508SPO

PATIENT
  Sex: Female

DRUGS (3)
  1. CLARITHROMYCIN. [Suspect]
     Active Substance: CLARITHROMYCIN
     Dosage: 250 MG, 2X PER DAY, ORAL
     Route: 048
     Dates: start: 20140325
  2. LANSOPRAZOLE. [Suspect]
     Active Substance: LANSOPRAZOLE
     Route: 048
     Dates: start: 20140325
  3. METRONIDAZOLE. [Suspect]
     Active Substance: METRONIDAZOLE
     Dosage: 200 MG,. 2X PER DAY
     Dates: start: 20140325

REACTIONS (25)
  - Lip swelling [None]
  - Feeling of body temperature change [None]
  - Somnolence [None]
  - Dyskinesia [None]
  - Oral pruritus [None]
  - Disorientation [None]
  - Dysgeusia [None]
  - Contusion [None]
  - Dissociation [None]
  - Chromaturia [None]
  - Headache [None]
  - Arthralgia [None]
  - Fatigue [None]
  - Diarrhoea [None]
  - Chills [None]
  - Back pain [None]
  - Hearing impaired [None]
  - Nausea [None]
  - Eye pruritus [None]
  - Malaise [None]
  - Product substitution issue [None]
  - Eye pain [None]
  - Flushing [None]
  - Oral pain [None]
  - Muscle twitching [None]
